FAERS Safety Report 16911525 (Version 1)
Quarter: 2019Q4

REPORT INFORMATION
  Report Type: Spontaneous
  Country: US (occurrence: US)
  Receive Date: 20191013
  Receipt Date: 20191013
  Transmission Date: 20200122
  Serious: No
  Sender: FDA-Public Use
  Company Number: US-C B FLEET CO INC-201811-US-002762

PATIENT
  Sex: Female

DRUGS (2)
  1. MONISTAT 7 WITH REUSABLE APPLICATOR [Suspect]
     Active Substance: MICONAZOLE NITRATE
     Route: 067
  2. MONISTAT 7 WITH REUSABLE APPLICATOR [Suspect]
     Active Substance: MICONAZOLE NITRATE
     Indication: FUNGAL INFECTION
     Dosage: DOSAGE UNKNOWN
     Route: 067

REACTIONS (1)
  - Drug ineffective [Recovered/Resolved]
